FAERS Safety Report 7235096-5 (Version None)
Quarter: 2011Q1

REPORT INFORMATION
  Report Type: 
  Country: None (occurrence: None)
  Receive Date: 20110120
  Receipt Date: 20110113
  Transmission Date: 20110831
  Serious: Yes (Hospitalization)
  Sender: FDA-Public Use
  Company Number: FR-JNJFOC-20110104529

PATIENT
  Age: 61 Year
  Sex: Male
  Weight: 59 kg

DRUGS (11)
  1. PRAVASTATIN [Concomitant]
     Indication: ILL-DEFINED DISORDER
     Route: 042
  2. ISOSORBIDE DINITRATE [Concomitant]
     Indication: ILL-DEFINED DISORDER
     Route: 042
  3. RAMIPRIL [Concomitant]
     Indication: ILL-DEFINED DISORDER
     Route: 042
  4. REOPRO [Suspect]
     Indication: ILL-DEFINED DISORDER
     Route: 042
  5. KARDEGIC [Concomitant]
     Indication: ILL-DEFINED DISORDER
     Route: 042
  6. ADENOSINE [Concomitant]
     Indication: ILL-DEFINED DISORDER
     Route: 042
  7. NEXIUM [Concomitant]
     Indication: ILL-DEFINED DISORDER
     Route: 042
  8. LASIX [Concomitant]
     Indication: ILL-DEFINED DISORDER
     Route: 042
  9. AMLODIPINE [Concomitant]
     Indication: ILL-DEFINED DISORDER
     Route: 042
  10. ENOXAPARIN SODIUM [Concomitant]
     Indication: ILL-DEFINED DISORDER
     Route: 042
  11. EFFIENT [Concomitant]
     Indication: ILL-DEFINED DISORDER
     Route: 042

REACTIONS (3)
  - GINGIVAL BLEEDING [None]
  - THROMBOCYTOPENIA [None]
  - PULMONARY OEDEMA [None]
